FAERS Safety Report 13424792 (Version 2)
Quarter: 2018Q4

REPORT INFORMATION
  Report Type: Report from Study
  Country: US (occurrence: US)
  Receive Date: 20170410
  Receipt Date: 20181204
  Transmission Date: 20190204
  Serious: Yes (Hospitalization)
  Sender: FDA-Public Use
  Company Number: US-ACTELION-A-US2017-152152

PATIENT
  Age: 52 Year
  Sex: Male

DRUGS (16)
  1. HYDROCHLOROTH [Concomitant]
     Active Substance: HYDROCHLOROTHIAZIDE
  2. METHOTREXATE. [Concomitant]
     Active Substance: METHOTREXATE
  3. TRACLEER [Suspect]
     Active Substance: BOSENTAN
     Indication: PULMONARY ARTERIAL HYPERTENSION
     Dosage: 125 MG, BID
     Route: 048
     Dates: start: 20130727
  4. POTASSIUM CHLORIDE. [Concomitant]
     Active Substance: POTASSIUM CHLORIDE
  5. AMLODIPINE [Concomitant]
     Active Substance: AMLODIPINE BESYLATE
  6. CELEBREX [Concomitant]
     Active Substance: CELECOXIB
  7. TRAMADOL. [Concomitant]
     Active Substance: TRAMADOL
  8. FUROSEMIDE. [Concomitant]
     Active Substance: FUROSEMIDE
  9. ADCIRCA [Concomitant]
     Active Substance: TADALAFIL
  10. PENTOXIFYLLIN [Concomitant]
     Active Substance: PENTOXIFYLLINE
  11. LIDOCAINE PRILOCAINE BIOGARAN [Concomitant]
  12. NORVASC [Concomitant]
     Active Substance: AMLODIPINE BESYLATE
  13. NEXIUM [Concomitant]
     Active Substance: ESOMEPRAZOLE MAGNESIUM
  14. ASPIRIN. [Concomitant]
     Active Substance: ASPIRIN
  15. FOLIC ACID. [Concomitant]
     Active Substance: FOLIC ACID
  16. MYCOPHENOLATE [Concomitant]
     Active Substance: MYCOPHENOLIC ACID

REACTIONS (1)
  - Spinal operation [Not Recovered/Not Resolved]

NARRATIVE: CASE EVENT DATE: 20170307
